FAERS Safety Report 6344739-X (Version None)
Quarter: 2009Q3

REPORT INFORMATION
  Report Type: 
  Country: None (occurrence: None)
  Receive Date: 20090904
  Receipt Date: 20090820
  Transmission Date: 20100115
  Serious: Yes (Other)
  Sender: FDA-Public Use
  Company Number: DSU-2009-01740

PATIENT
  Age: 78 Year
  Sex: Female
  Weight: 56.6996 kg

DRUGS (5)
  1. BENICAR [Suspect]
     Indication: HYPERTENSION
     Dosage: 20 MG (20 MG,QD), PER ORAL
     Route: 048
     Dates: start: 20090129, end: 20090701
  2. ATENOLOL [Concomitant]
  3. XALATAN [Concomitant]
  4. NEVANAC       (NEPAFENAC) [Concomitant]
  5. COMBIGAN            (BRIMONODINE + TIMOLOL) [Concomitant]

REACTIONS (2)
  - HYPOTENSION [None]
  - LOSS OF CONSCIOUSNESS [None]
